FAERS Safety Report 13660263 (Version 1)
Quarter: 2017Q2

REPORT INFORMATION
  Report Type: Spontaneous
  Country: US (occurrence: US)
  Receive Date: 20170615
  Receipt Date: 20170615
  Transmission Date: 20170830
  Serious: No
  Sender: FDA-Public Use
  Company Number: None

PATIENT
  Age: 52 Year
  Sex: Female

DRUGS (1)
  1. HARVONI [Suspect]
     Active Substance: LEDIPASVIR\SOFOSBUVIR
     Indication: HEPATITIS C
     Route: 048
     Dates: start: 20170516

REACTIONS (6)
  - Arthritis [None]
  - Paraesthesia [None]
  - Arthralgia [None]
  - Oropharyngeal pain [None]
  - Hypoaesthesia [None]
  - Lymphadenopathy [None]

NARRATIVE: CASE EVENT DATE: 20170516
